FAERS Safety Report 5158465-6 (Version None)
Quarter: 2006Q4

REPORT INFORMATION
  Report Type: 
  Country: None (occurrence: None)
  Receive Date: 20061116
  Receipt Date: 20061108
  Transmission Date: 20070319
  Serious: Yes (Hospitalization, Other)
  Sender: FDA-Public Use
  Company Number: 2006-06-0004

PATIENT
  Age: 63 Year
  Sex: Female
  Weight: 60 kg

DRUGS (8)
  1. PEG-INTRON [Suspect]
     Indication: HEPATITIS C
     Dosage: 60 MCG; QW; SC, SEE IMAGE
     Route: 058
     Dates: start: 20051109, end: 20060118
  2. PEG-INTRON [Suspect]
     Indication: HEPATITIS C
     Dosage: 60 MCG; QW; SC, SEE IMAGE
     Route: 058
     Dates: start: 20060125, end: 20060517
  3. PEG-INTRON [Suspect]
     Indication: HEPATITIS C
     Dosage: 60 MCG; QW; SC, SEE IMAGE
     Route: 058
     Dates: start: 20060712
  4. REBETOL [Suspect]
     Indication: HEPATITIS C
     Dosage: 400 MG; QD; PO
     Route: 048
     Dates: start: 20051109, end: 20060418
  5. REBETOL [Suspect]
     Indication: HEPATITIS C
     Dosage: 400 MG; QD; PO
     Route: 048
     Dates: start: 20060419, end: 20060517
  6. REBETOL [Suspect]
     Indication: HEPATITIS C
     Dosage: 400 MG; QD; PO
     Route: 048
     Dates: start: 20060712
  7. TAKEPRON (CON) [Concomitant]
  8. URSO (CON) [Concomitant]

REACTIONS (5)
  - CEREBRAL HAEMORRHAGE [None]
  - HAEMOGLOBIN DECREASED [None]
  - HYPERTENSION [None]
  - PLATELET COUNT DECREASED [None]
  - THALAMUS HAEMORRHAGE [None]
